FAERS Safety Report 7667181-8 (Version None)
Quarter: 2011Q3

REPORT INFORMATION
  Report Type: 
  Country: None (occurrence: None)
  Receive Date: 20110806
  Receipt Date: 20110511
  Transmission Date: 20111222
  Serious: No
  Sender: FDA-Public Use
  Company Number: US-ABBOTT-11P-163-0725209-00

PATIENT
  Sex: Male
  Weight: 128.48 kg

DRUGS (1)
  1. NIASPAN [Suspect]
     Indication: HYPERTRIGLYCERIDAEMIA
     Dates: start: 20110419, end: 20110426

REACTIONS (1)
  - RASH [None]
